FAERS Safety Report 25020102 (Version 1)
Quarter: 2025Q1

REPORT INFORMATION
  Report Type: Spontaneous
  Country: NL (occurrence: NL)
  Receive Date: 20250227
  Receipt Date: 20250227
  Transmission Date: 20250409
  Serious: Yes (Other)
  Sender: SANOFI AVENTIS
  Company Number: None

PATIENT
  Age: 67 Year
  Sex: Male
  Weight: 100 kg

DRUGS (2)
  1. CLOPIDOGREL BISULFATE [Suspect]
     Active Substance: CLOPIDOGREL BISULFATE
     Indication: Transient ischaemic attack
     Dosage: 1 TABLET ONCE DAILY
     Route: 048
     Dates: start: 20240916
  2. HERBALS [Suspect]
     Active Substance: HERBALS
     Indication: Constipation
     Route: 048
     Dates: start: 20241010

REACTIONS (1)
  - Jaundice [Recovered/Resolved]
